FAERS Safety Report 6856362-9 (Version None)
Quarter: 2010Q3

REPORT INFORMATION
  Report Type: 
  Country: None (occurrence: None)
  Receive Date: 20100715
  Receipt Date: 20100715
  Transmission Date: 20110219
  Serious: Yes (Life-Threatening)
  Sender: FDA-Public Use
  Company Number: None

PATIENT
  Sex: Female
  Weight: 66.6788 kg

DRUGS (12)
  1. IC-GREEN [Suspect]
     Indication: IMAGING PROCEDURE
     Dosage: 10 MG BOLUS, IV
     Route: 040
     Dates: start: 20100526
  2. IC-GREEN [Suspect]
  3. DIPRIVAN [Concomitant]
  4. ROCURONIUM [Concomitant]
  5. VERSED [Concomitant]
  6. CAFFEINE [Concomitant]
  7. PEPCID [Concomitant]
  8. SCOPALOMINE [Concomitant]
  9. FENTANYL [Concomitant]
  10. HYDRAZALINE DALAUDID [Concomitant]
  11. ZOFRAN [Concomitant]
  12. VANCOMYCIN [Concomitant]

REACTIONS (3)
  - APPARENT LIFE THREATENING EVENT [None]
  - HYPOTENSION [None]
  - NO THERAPEUTIC RESPONSE [None]
